FAERS Safety Report 24445087 (Version 2)
Quarter: 2024Q4

REPORT INFORMATION
  Report Type: Spontaneous
  Country: BR (occurrence: BR)
  Receive Date: 20241016
  Receipt Date: 20241031
  Transmission Date: 20250114
  Serious: Yes (Hospitalization)
  Sender: ELI LILLY AND COMPANY
  Company Number: BR-ELI_LILLY_AND_COMPANY-BR202307016729

PATIENT
  Age: 57 Year
  Sex: Female

DRUGS (5)
  1. ABEMACICLIB [Suspect]
     Active Substance: ABEMACICLIB
     Indication: Breast cancer
     Dosage: 150 MG, DAILY
     Route: 048
     Dates: start: 20230513
  2. ABEMACICLIB [Suspect]
     Active Substance: ABEMACICLIB
     Dosage: 150 MG, BID
     Route: 048
     Dates: start: 202305
  3. ABEMACICLIB [Suspect]
     Active Substance: ABEMACICLIB
     Dosage: 150 MG, BID
     Route: 048
  4. ABEMACICLIB [Suspect]
     Active Substance: ABEMACICLIB
     Dosage: 150 MG, BID
     Route: 048
  5. ABEMACICLIB [Suspect]
     Active Substance: ABEMACICLIB
     Dosage: 150 MG, BID
     Route: 048

REACTIONS (4)
  - Intestinal obstruction [Not Recovered/Not Resolved]
  - Discomfort [Unknown]
  - Constipation [Unknown]
  - Diarrhoea [Not Recovered/Not Resolved]

NARRATIVE: CASE EVENT DATE: 20230101
